FAERS Safety Report 22291762 (Version 1)
Quarter: 2023Q2

REPORT INFORMATION
  Report Type: Spontaneous
  Country: US (occurrence: None)
  Receive Date: 20230505
  Receipt Date: 20230505
  Transmission Date: 20230722
  Serious: Yes (Disabling, Other)
  Sender: FDA-Public Use
  Company Number: None

PATIENT
  Age: 70 Year
  Sex: Female
  Weight: 78.75 kg

DRUGS (39)
  1. HIBICLENS [Suspect]
     Active Substance: CHLORHEXIDINE GLUCONATE
     Indication: Infection prophylaxis
     Dosage: 1 APPLICATION AS NEEDED TOPICAL?
     Route: 061
     Dates: start: 20201130, end: 20220630
  2. ASTAXANTHIN [Concomitant]
     Active Substance: ASTAXANTHIN
  3. CHORELLA [Concomitant]
  4. TYLENOL [Concomitant]
     Active Substance: ACETAMINOPHEN
  5. TUMS [Concomitant]
     Active Substance: CALCIUM CARBONATE
  6. SODIUM [Concomitant]
     Active Substance: SODIUM
  7. DOCUSATE [Concomitant]
     Active Substance: DOCUSATE
  8. MOTRIN [Concomitant]
     Active Substance: IBUPROFEN
  9. VALSARTAN [Concomitant]
  10. EXOMETANE [Concomitant]
  11. ZETIA [Concomitant]
     Active Substance: EZETIMIBE
  12. DOXYCYCLINE [Concomitant]
     Active Substance: DOXYCYCLINE
  13. SYNTHROID [Concomitant]
     Active Substance: LEVOTHYROXINE SODIUM
  14. FAMOTIDINE [Concomitant]
     Active Substance: FAMOTIDINE
  15. MONTELUKAST [Concomitant]
     Active Substance: MONTELUKAST SODIUM
  16. DYMISTA [Concomitant]
     Active Substance: AZELASTINE HYDROCHLORIDE\FLUTICASONE PROPIONATE
  17. ROSUVASTATIN [Concomitant]
     Active Substance: ROSUVASTATIN
  18. VITAMIN D [Concomitant]
     Active Substance: VITAMIN D NOS
  19. BELSOMRA [Concomitant]
     Active Substance: SUVOREXANT
  20. SAVELLA [Concomitant]
  21. SUNOS [Concomitant]
  22. TAMSULOSIN [Concomitant]
     Active Substance: TAMSULOSIN
  23. GUANFACINE [Concomitant]
     Active Substance: GUANFACINE
  24. NAC KD [Concomitant]
  25. NALTREXONE [Concomitant]
     Active Substance: NALTREXONE
  26. FARXIGA [Concomitant]
     Active Substance: DAPAGLIFLOZIN PROPANEDIOL
  27. JANUVIA [Concomitant]
  28. MYRBETRIQ [Concomitant]
     Active Substance: MIRABEGRON
  29. MOMESTASONE [Concomitant]
  30. VALERATE [Concomitant]
  31. LIDOCAINE [Concomitant]
     Active Substance: LIDOCAINE
  32. BETAMETHASONE [Concomitant]
     Active Substance: BETAMETHASONE
  33. HUMAN IMMUNOGLOBULIN G [Concomitant]
     Active Substance: HUMAN IMMUNOGLOBULIN G
  34. METRONIDAZOLE [Concomitant]
     Active Substance: METRONIDAZOLE
  35. AZELIC [Concomitant]
  36. HYDROCODONE BITARTRATE AND ACETAMINOPHEN [Concomitant]
     Active Substance: ACETAMINOPHEN\HYDROCODONE BITARTRATE
  37. OXYCODONE [Concomitant]
     Active Substance: OXYCODONE
  38. LINAZESS [Concomitant]
  39. CHLORAPREP [Suspect]
     Active Substance: CHLORHEXIDINE GLUCONATE\ISOPROPYL ALCOHOL

REACTIONS (8)
  - Hypersensitivity [None]
  - Inflammation [None]
  - Skin weeping [None]
  - Skin exfoliation [None]
  - Impaired healing [None]
  - Pain [None]
  - Scab [None]
  - Insomnia [None]

NARRATIVE: CASE EVENT DATE: 20201130
